FAERS Safety Report 5838081-0 (Version None)
Quarter: 2008Q3

REPORT INFORMATION
  Report Type: 
  Country: None (occurrence: None)
  Receive Date: 20080808
  Receipt Date: 20080521
  Transmission Date: 20090109
  Serious: No
  Sender: FDA-Public Use
  Company Number: A0729973A

PATIENT
  Age: 54 Year
  Sex: Female

DRUGS (4)
  1. PAXIL [Suspect]
     Indication: DEPRESSION
     Route: 048
     Dates: start: 20000101
  2. WELLBUTRIN [Suspect]
     Indication: DEPRESSION
     Route: 048
     Dates: start: 20000101
  3. VITAMIN TAB [Concomitant]
  4. ASPIRIN [Concomitant]

REACTIONS (12)
  - ARTHRITIS [None]
  - CONFUSIONAL STATE [None]
  - CONVERSION DISORDER [None]
  - DECREASED APPETITE [None]
  - DIARRHOEA [None]
  - DISORIENTATION [None]
  - DIZZINESS [None]
  - DYSPEPSIA [None]
  - EMOTIONAL DISTRESS [None]
  - HYPOTONIA [None]
  - STARVATION [None]
  - WEIGHT DECREASED [None]
